FAERS Safety Report 7826922-7 (Version None)
Quarter: 2011Q4

REPORT INFORMATION
  Report Type: 
  Country: None (occurrence: None)
  Receive Date: 20111018
  Receipt Date: 20111005
  Transmission Date: 20120403
  Serious: Yes (Other)
  Sender: FDA-Public Use
  Company Number: AUR-APL-2010-02456

PATIENT
  Age: 49 Year
  Sex: Female

DRUGS (9)
  1. LAMITRIGINE (LAMOTRIGINE, LAMOTRIGINE) [Suspect]
     Indication: CONVULSION
     Dosage: 50 MG
     Dates: end: 20100801
  2. AMISULPRIDE (AMISULPRIDE, AMISULPRIDE) [Suspect]
     Indication: SCHIZOPHRENIA
     Dosage: 200 MG, ORAL; ORAL
     Route: 048
     Dates: end: 20100801
  3. CLOZARIL [Suspect]
     Indication: SCHIZOPHRENIA
     Dosage: 600 MG, 1 IN 1 D, ORAL; 600 MG, 1 IN 1 D,ORAL
     Route: 048
     Dates: start: 20050207
  4. CLOZARIL [Suspect]
     Indication: DISEASE RECURRENCE
     Dosage: 600 MG, 1 IN 1 D, ORAL; 600 MG, 1 IN 1 D,ORAL
     Route: 048
     Dates: start: 20050207
  5. CLOZARIL [Suspect]
     Indication: SCHIZOPHRENIA
     Dosage: 600 MG, 1 IN 1 D, ORAL; 600 MG, 1 IN 1 D,ORAL
     Route: 048
     Dates: start: 20050207
  6. CLOZARIL [Suspect]
     Indication: DISEASE RECURRENCE
     Dosage: 600 MG, 1 IN 1 D, ORAL; 600 MG, 1 IN 1 D,ORAL
     Route: 048
     Dates: start: 20050207
  7. RAMIPRIL [Concomitant]
  8. TEMAZEPAM [Concomitant]
  9. PAROXETINE (PAROXETINE) (PAROXETINE) [Concomitant]

REACTIONS (13)
  - ABSCESS [None]
  - METASTASES TO SPINE [None]
  - DISSEMINATED INTRAVASCULAR COAGULATION [None]
  - HAEMOGLOBIN DECREASED [None]
  - GENERAL PHYSICAL HEALTH DETERIORATION [None]
  - DISEASE RECURRENCE [None]
  - BREAST ABSCESS [None]
  - WHITE BLOOD CELL COUNT INCREASED [None]
  - MENTAL IMPAIRMENT [None]
  - SCHIZOPHRENIA [None]
  - BREAST CANCER METASTATIC [None]
  - PLATELET COUNT DECREASED [None]
  - NEUTROPHIL COUNT INCREASED [None]
